FAERS Safety Report 8891256 (Version 3)
Quarter: 2013Q1

REPORT INFORMATION
  Report Type: Spontaneous
  Country: US (occurrence: US)
  Receive Date: 20121107
  Receipt Date: 20130123
  Transmission Date: 20140127
  Serious: Yes (Hospitalization)
  Sender: FDA-Public Use
  Company Number: US-VERTEX PHARMACEUTICAL INC.-2012-024090

PATIENT
  Age: 60 None
  Sex: Male
  Weight: 78 kg

DRUGS (6)
  1. INCIVEK [Suspect]
     Indication: HEPATITIS C
     Dosage: 750 MG, TID
     Route: 048
     Dates: start: 20121030
  2. RIBAVIRIN [Suspect]
     Indication: HEPATITIS C
     Dosage: 600 MG AM, 400 MG PM
     Route: 048
     Dates: start: 20121030
  3. PEGASYS [Suspect]
     Indication: HEPATITIS C
     Dosage: 180 ?G, WEEKLY
     Route: 058
     Dates: start: 20121030
  4. HYDROCODONE [Concomitant]
     Indication: NECK PAIN
     Dosage: UNK, PRN
  5. HYDROCODONE [Concomitant]
     Indication: PAIN
  6. PROCRIT [Concomitant]
     Indication: ANAEMIA
     Dosage: 2000 UNITS/ WEEKLY
     Route: 058

REACTIONS (8)
  - Hospitalisation [Unknown]
  - Influenza like illness [Recovered/Resolved]
  - Asthenia [Unknown]
  - Fatigue [Unknown]
  - Anaemia [Unknown]
  - Rash [Unknown]
  - Dysgeusia [Not Recovered/Not Resolved]
  - Pruritus [Not Recovered/Not Resolved]
